FAERS Safety Report 8858465 (Version 2)
Quarter: 2012Q4

REPORT INFORMATION
  Report Type: 
  Country: FR (occurrence: FR)
  Receive Date: 20121025
  Receipt Date: 20121210
  Transmission Date: 20130627
  Serious: Yes (Hospitalization)
  Sender: FDA-Public Use
  Company Number: FR-AMGEN-FRASP2012067704

PATIENT
  Age: 55 Year
  Sex: Female

DRUGS (5)
  1. ENBREL [Suspect]
     Indication: ANKYLOSING SPONDYLITIS
     Dosage: 50 mg, qwk
     Dates: start: 20091104, end: 20120627
  2. ENBREL [Suspect]
     Indication: PSORIATIC ARTHROPATHY
     Dosage: UNK
  3. METHOTREXATE [Concomitant]
     Dosage: 10 mg, weekly
     Route: 048
     Dates: start: 20070131, end: 20120627
  4. METHOTREXATE [Concomitant]
     Dosage: 10 mg, qwk
     Route: 048
     Dates: start: 20070131, end: 20120627
  5. CORTANCYL [Concomitant]
     Dosage: 5 mg, 1x/day
     Dates: start: 20070131, end: 20120627

REACTIONS (1)
  - Sarcoma [Not Recovered/Not Resolved]
